FAERS Safety Report 10304079 (Version 2)
Quarter: 2014Q3

REPORT INFORMATION
  Report Type: Spontaneous
  Country: US (occurrence: US)
  Receive Date: 20140714
  Receipt Date: 20140714
  Transmission Date: 20150326
  Serious: No
  Sender: FDA-Public Use
  Company Number: US-GILEAD-2013-0085523

PATIENT
  Age: 71 Year
  Sex: Female

DRUGS (1)
  1. LETAIRIS [Suspect]
     Active Substance: AMBRISENTAN
     Indication: PRODUCT USED FOR UNKNOWN INDICATION
     Dosage: 5 MG, QD
     Route: 048
     Dates: start: 20130805, end: 20130928

REACTIONS (5)
  - Abasia [Unknown]
  - Renal impairment [Unknown]
  - Oedema peripheral [Unknown]
  - Skin ulcer [Unknown]
  - Malaise [Unknown]

NARRATIVE: CASE EVENT DATE: 201308
